FAERS Safety Report 25845579 (Version 1)
Quarter: 2025Q3

REPORT INFORMATION
  Report Type: Spontaneous
  Country: EU (occurrence: EU)
  Receive Date: 20250925
  Receipt Date: 20250925
  Transmission Date: 20251020
  Serious: Yes (Disabling)
  Sender: MACLEODS
  Company Number: EU-MLMSERVICE-20250908-PI640302-00285-1

PATIENT

DRUGS (3)
  1. ARIPIPRAZOLE [Suspect]
     Active Substance: ARIPIPRAZOLE
     Indication: Tic
     Dosage: MAX DOSE 35 MG/DAY
     Route: 065
  2. TIAPRIDE [Suspect]
     Active Substance: TIAPRIDE
     Indication: Tic
     Dosage: MAX DOSE 600 MG/DAY
     Route: 065
  3. RISPERIDONE [Suspect]
     Active Substance: RISPERIDONE
     Indication: Tic
     Dosage: MAX DOSE 8 MG/DAY
     Route: 065

REACTIONS (2)
  - Lethargy [Unknown]
  - Sedation [Unknown]
